FAERS Safety Report 9294994 (Version 1)
Quarter: 2013Q2

REPORT INFORMATION
  Report Type: Spontaneous
  Country: US (occurrence: None)
  Receive Date: 20130516
  Receipt Date: 20130516
  Transmission Date: 20140414
  Serious: No
  Sender: FDA-Public Use
  Company Number: None

PATIENT
  Age: 49 Year
  Sex: Female
  Weight: 80.74 kg

DRUGS (2)
  1. VESICARE [Suspect]
     Indication: PELVIC PAIN
     Dosage: 1 TAB
     Route: 048
     Dates: start: 20130201, end: 20130514
  2. VESICARE [Suspect]
     Indication: BLADDER PAIN
     Dosage: 1 TAB
     Route: 048
     Dates: start: 20130201, end: 20130514

REACTIONS (6)
  - Oedema peripheral [None]
  - Dysuria [None]
  - Night blindness [None]
  - Nausea [None]
  - Constipation [None]
  - Drug effect decreased [None]
